FAERS Safety Report 4644958-4 (Version None)
Quarter: 2005Q2

REPORT INFORMATION
  Report Type: 
  Country: None (occurrence: None)
  Receive Date: 20050426
  Receipt Date: 20050414
  Transmission Date: 20051028
  Serious: Yes (Other)
  Sender: FDA-Public Use
  Company Number: US-GLAXOSMITHKLINE-A0554192A

PATIENT
  Age: 49 Year
  Sex: Female
  Weight: 62.7 kg

DRUGS (1)
  1. NICORETTE [Suspect]
     Route: 002
     Dates: start: 20040101

REACTIONS (5)
  - DEPENDENCE [None]
  - DRUG ABUSER [None]
  - DRUG WITHDRAWAL SYNDROME [None]
  - HICCUPS [None]
  - NICOTINE DEPENDENCE [None]
